FAERS Safety Report 20033732 (Version 1)
Quarter: 2021Q4

REPORT INFORMATION
  Report Type: Spontaneous
  Country: CN (occurrence: CN)
  Receive Date: 20211104
  Receipt Date: 20211104
  Transmission Date: 20220304
  Serious: Yes (Hospitalization, Other)
  Sender: FDA-Public Use
  Company Number: CN-FRESENIUS KABI-FK202111954

PATIENT
  Age: 86 Year
  Sex: Female

DRUGS (5)
  1. SMOFLIPID [Suspect]
     Active Substance: FISH OIL\MEDIUM-CHAIN TRIGLYCERIDES\OLIVE OIL\SOYBEAN OIL
     Indication: Nutritional supplementation
     Dosage: THE DOSAGE FORM WAS REPORTED AS INJECTION IN THE SOURCE.
     Route: 041
     Dates: start: 20210926, end: 20211003
  2. SOMATOSTATIN ACETATE [Concomitant]
     Indication: Symptomatic treatment
     Dosage: INTRAVENOUS INJECTION OF STILAMIN VIA THE PUMP
     Route: 041
     Dates: start: 20210926
  3. ULINASTATIN [Concomitant]
     Active Substance: ULINASTATIN
     Indication: Symptomatic treatment
     Route: 065
     Dates: start: 20210926
  4. AMINO ACIDS, SOURCE UNSPECIFIED [Concomitant]
     Active Substance: AMINO ACIDS, SOURCE UNSPECIFIED
     Indication: Nutritional supplementation
     Route: 065
     Dates: start: 20210926
  5. VITAMINS NOS [Concomitant]
     Active Substance: VITAMINS
     Indication: Nutritional supplementation
     Route: 065
     Dates: start: 20210926

REACTIONS (2)
  - Cerebral infarction [Recovering/Resolving]
  - Epilepsy [Recovering/Resolving]

NARRATIVE: CASE EVENT DATE: 20211003
